FAERS Safety Report 22953833 (Version 2)
Quarter: 2025Q4

REPORT INFORMATION
  Report Type: Report from Study
  Country: None (occurrence: JP)
  Receive Date: 20230918
  Receipt Date: 20251010
  Transmission Date: 20260117
  Serious: Yes (Hospitalization)
  Sender: ALNYLAM PHARMACEUTICALS
  Company Number: JP-ALNYLAM PHARMACEUTICALS, INC.-ALN-2023-004562

PATIENT
  Age: 80 Year
  Weight: 68 kg

DRUGS (6)
  1. AMVUTTRA [Suspect]
     Active Substance: VUTRISIRAN
     Indication: Hereditary neuropathic amyloidosis
     Dosage: 25 MILLIGRAM, Q3M
  2. JUVELA [Concomitant]
     Active Substance: .ALPHA.-TOCOPHEROL\RETINOL
     Indication: Hereditary neuropathic amyloidosis
     Dosage: 50 MILLIGRAM, TID
     Route: 065
  3. MOSAPRIDE CITRATE [Concomitant]
     Active Substance: MOSAPRIDE CITRATE
     Indication: Hereditary neuropathic amyloidosis
     Dosage: 5 MILLIGRAM, TID
     Route: 065
  4. EDOXABAN TOSYLATE [Concomitant]
     Active Substance: EDOXABAN TOSYLATE
     Indication: Hereditary neuropathic amyloidosis
     Dosage: 30 MILLIGRAM, QD
     Route: 065
  5. VITAMINS [Concomitant]
     Active Substance: VITAMINS
     Indication: Prophylaxis
     Dosage: 1 GRAM, QD
     Route: 065
  6. ENALAPRIL MALEATE [Concomitant]
     Active Substance: ENALAPRIL MALEATE
     Indication: Hereditary neuropathic amyloidosis
     Dosage: 10 MILLIGRAM, QD
     Route: 065

REACTIONS (1)
  - Sepsis [Not Recovered/Not Resolved]
